FAERS Safety Report 15402150 (Version 1)
Quarter: 2018Q3

REPORT INFORMATION
  Report Type: Spontaneous
  Country: US (occurrence: US)
  Receive Date: 20180915
  Receipt Date: 20180915
  Transmission Date: 20181010
  Serious: Yes (Life-Threatening, Hospitalization, Disabling, Other)
  Sender: FDA-Public Use
  Company Number: None

PATIENT
  Age: 25 Year
  Sex: Female
  Weight: 48.6 kg

DRUGS (4)
  1. FLUTICASONE. [Suspect]
     Active Substance: FLUTICASONE
     Indication: ASTHMA
     Dosage: ?          QUANTITY:3 SPRAY(S);?
     Route: 055
     Dates: start: 20180127, end: 20180607
  2. FLUTICASONE. [Suspect]
     Active Substance: FLUTICASONE
     Indication: PNEUMONIA INFLUENZAL
     Dosage: ?          QUANTITY:3 SPRAY(S);?
     Route: 055
     Dates: start: 20180127, end: 20180607
  3. ABUTEROL [Concomitant]
  4. NASAL SPRAYS [Concomitant]

REACTIONS (11)
  - Palpitations [None]
  - Personality disorder [None]
  - Chest pain [None]
  - Fall [None]
  - Dysphonia [None]
  - Bronchitis [None]
  - Haemoptysis [None]
  - Asthma [None]
  - Dyspnoea [None]
  - Loss of employment [None]
  - Stress [None]

NARRATIVE: CASE EVENT DATE: 20180127
